FAERS Safety Report 24608796 (Version 2)
Quarter: 2025Q1

REPORT INFORMATION
  Report Type: Spontaneous
  Country: US (occurrence: US)
  Receive Date: 20241112
  Receipt Date: 20250206
  Transmission Date: 20250409
  Serious: No
  Sender: ALKERMES
  Company Number: US-ALKERMES INC.-ALK-2024-002810

PATIENT
  Age: 26 Year
  Sex: Male

DRUGS (1)
  1. LYBALVI [Suspect]
     Active Substance: OLANZAPINE\SAMIDORPHAN L-MALATE
     Indication: Behavioural therapy
     Route: 048
     Dates: start: 20220614, end: 20220615

REACTIONS (2)
  - Hypersomnia [Unknown]
  - Off label use [Unknown]

NARRATIVE: CASE EVENT DATE: 20220614
